FAERS Safety Report 5697877-9 (Version None)
Quarter: 2008Q2

REPORT INFORMATION
  Report Type: 
  Country: None (occurrence: None)
  Receive Date: 20080404
  Receipt Date: 20080404
  Transmission Date: 20081010
  Serious: No
  Sender: FDA-Public Use
  Company Number: None

PATIENT
  Age: 67 Year
  Sex: Male

DRUGS (7)
  1. MELATONEX [Suspect]
     Dates: end: 20070321
  2. ALTACE [Concomitant]
  3. LIPITOR [Concomitant]
  4. ASPIRIN [Concomitant]
  5. GLUCOSAMINE CHONDRITIN [Concomitant]
  6. MULTI-VITAMIN [Concomitant]
  7. TYLENOL [Concomitant]

REACTIONS (7)
  - ANOREXIA [None]
  - DRUG INTERACTION [None]
  - FAECES DISCOLOURED [None]
  - FATIGUE [None]
  - JAUNDICE [None]
  - LIVER INJURY [None]
  - WEIGHT DECREASED [None]
